FAERS Safety Report 6305665-5 (Version None)
Quarter: 2009Q3

REPORT INFORMATION
  Report Type: 
  Country: None (occurrence: None)
  Receive Date: 20090807
  Receipt Date: 20090803
  Transmission Date: 20100115
  Serious: Yes (Other)
  Sender: FDA-Public Use
  Company Number: 2009SP012839

PATIENT
  Age: 42 Year
  Sex: Male
  Weight: 70.3075 kg

DRUGS (2)
  1. MIRALAX [Suspect]
     Indication: COLONOSCOPY
     Dosage: 34 GM; ONCE; PO
     Route: 048
     Dates: start: 20090610
  2. ASPIRN /00002701/ [Concomitant]

REACTIONS (11)
  - DRUG HYPERSENSITIVITY [None]
  - DYSPNOEA [None]
  - HEADACHE [None]
  - HYPOAESTHESIA ORAL [None]
  - HYPOTENSION [None]
  - NAUSEA [None]
  - OCULAR HYPERAEMIA [None]
  - PAIN [None]
  - SWELLING [None]
  - SYNCOPE [None]
  - VOMITING [None]
